FAERS Safety Report 5872754-9 (Version None)
Quarter: 2008Q3

REPORT INFORMATION
  Report Type: 
  Country: None (occurrence: None)
  Receive Date: 20080905
  Receipt Date: 20080828
  Transmission Date: 20090109
  Serious: Yes (Hospitalization)
  Sender: FDA-Public Use
  Company Number: US-BAYER-200831444NA

PATIENT
  Age: 83 Year
  Sex: Female
  Weight: 49 kg

DRUGS (14)
  1. CAMPATH [Suspect]
     Indication: CHRONIC LYMPHOCYTIC LEUKAEMIA
     Dosage: TOTAL DAILY DOSE: 3 MG
     Route: 042
     Dates: start: 20080819, end: 20080819
  2. CAMPATH [Suspect]
     Dates: start: 20040401, end: 20040501
  3. BENADRYL [Concomitant]
     Indication: PREMEDICATION
  4. TYLENOL (CAPLET) [Concomitant]
     Indication: PREMEDICATION
  5. TAGAMET [Concomitant]
     Indication: PREMEDICATION
     Route: 042
  6. SYNTHROID [Concomitant]
  7. LASIX [Concomitant]
  8. PLAVIX [Concomitant]
     Dosage: TOTAL DAILY DOSE: 75 MG
  9. CRESTOR [Concomitant]
     Dosage: TOTAL DAILY DOSE: 5 MG
  10. OMACOR [Concomitant]
  11. FOLIC ACID [Concomitant]
  12. COLACE [Concomitant]
  13. CALTRATE [Concomitant]
  14. CARDIAC MEDICATION [Concomitant]

REACTIONS (6)
  - CHEST PAIN [None]
  - CHILLS [None]
  - DYSPNOEA [None]
  - HYPERTENSION [None]
  - HYPOTENSION [None]
  - OXYGEN SATURATION DECREASED [None]
